FAERS Safety Report 9923425 (Version 1)
Quarter: 2014Q1

REPORT INFORMATION
  Report Type: Spontaneous
  Country: US (occurrence: US)
  Receive Date: 20140225
  Receipt Date: 20140225
  Transmission Date: 20141002
  Serious: No
  Sender: FDA-Public Use
  Company Number: US-009507513-1402USA011443

PATIENT
  Sex: Female

DRUGS (5)
  1. CORICIDIN HBP COLD AND FLU [Suspect]
     Indication: INFLUENZA
     Dosage: UNK, UNKNOWN
     Route: 048
  2. CORICIDIN HBP COLD AND FLU [Suspect]
     Indication: OROPHARYNGEAL PAIN
  3. CORICIDIN HBP COLD AND FLU [Suspect]
     Indication: PAIN
  4. CORICIDIN HBP COLD AND FLU [Suspect]
     Indication: HEADACHE
  5. CORICIDIN HBP COLD AND FLU [Suspect]
     Indication: CHILLS

REACTIONS (2)
  - Fatigue [Unknown]
  - Drug ineffective [Unknown]
